FAERS Safety Report 13698729 (Version 2)
Quarter: 2017Q3

REPORT INFORMATION
  Report Type: Spontaneous
  Country: CH (occurrence: CH)
  Receive Date: 20170628
  Receipt Date: 20170815
  Transmission Date: 20171127
  Serious: Yes (Disabling, Other)
  Sender: FDA-Public Use
  Company Number: CH-PFIZER INC-2017272605

PATIENT
  Age: 60 Year
  Sex: Female
  Weight: 77 kg

DRUGS (4)
  1. RELPAX [Suspect]
     Active Substance: ELETRIPTAN HYDROBROMIDE
     Indication: MIGRAINE
     Dosage: 40 MG, SINGLE (11H)
     Route: 048
     Dates: start: 20170521
  2. ITINEROL B6 [Interacting]
     Active Substance: CAFFEINE\MECLIZINE MONOHYDROCHLORIDE\PYRIDOXINE HYDROCHLORIDE
     Indication: MIGRAINE
     Dosage: 1 DF, TWICE (16H AND 18H)
     Route: 048
     Dates: start: 20170521
  3. ALENDRON MEPHA [Interacting]
     Active Substance: ALENDRONATE SODIUM
     Indication: OSTEOPOROSIS
     Dosage: 70 MG, WEEKLY
     Route: 048
     Dates: start: 201609
  4. ZOMIG [Interacting]
     Active Substance: ZOLMITRIPTAN
     Indication: MIGRAINE
     Dosage: 1 DF, SINGLE (14H)
     Route: 045
     Dates: start: 20170521

REACTIONS (5)
  - Drug interaction [Recovered/Resolved]
  - Fall [Unknown]
  - Fatigue [Unknown]
  - Foot fracture [Unknown]
  - Drug ineffective [Recovered/Resolved]

NARRATIVE: CASE EVENT DATE: 20170521
